FAERS Safety Report 8137301-X (Version None)
Quarter: 2012Q1

REPORT INFORMATION
  Report Type: 
  Country: None (occurrence: None)
  Receive Date: 20120210
  Receipt Date: 20120130
  Transmission Date: 20120608
  Serious: Yes (Other)
  Sender: FDA-Public Use
  Company Number: 2012MA001611

PATIENT
  Age: 63 Year
  Sex: Female

DRUGS (2)
  1. CITALOPRAM HYDROBROMIDE [Suspect]
     Indication: DEPRESSION
     Dates: start: 20110101, end: 20110101
  2. CITALOPRAM HYDROBROMIDE [Concomitant]

REACTIONS (2)
  - DISEASE RECURRENCE [None]
  - DEPRESSION [None]
